FAERS Safety Report 9013594 (Version 1)
Quarter: 2013Q1

REPORT INFORMATION
  Report Type: Spontaneous
  Country: US (occurrence: None)
  Receive Date: 20130107
  Receipt Date: 20130107
  Transmission Date: 20140127
  Serious: Yes (Other)
  Sender: FDA-Public Use
  Company Number: None

PATIENT
  Sex: Female
  Weight: 62.6 kg

DRUGS (1)
  1. IBANDRONATE SODIUM [Suspect]
     Dosage: 150 MG TAB ONCE A MONTH PO
     Route: 048
     Dates: start: 20121128, end: 20121228

REACTIONS (1)
  - Back pain [None]
